FAERS Safety Report 4345812-8 (Version None)
Quarter: 2004Q2

REPORT INFORMATION
  Report Type: 
  Country: None (occurrence: None)
  Receive Date: 20040424
  Receipt Date: 20040415
  Transmission Date: 20050107
  Serious: Yes (Hospitalization)
  Sender: FDA-Public Use
  Company Number: JP-MERCK-0404USA01772

PATIENT
  Age: 91 Year
  Sex: Female

DRUGS (3)
  1. AMINO ACIDS (UNSPECIFIED) AND CARBOHYDRATES (UNSPECIFIED) AND ELECTROL [Concomitant]
     Indication: PARENTERAL NUTRITION
     Route: 042
     Dates: start: 20040301
  2. PEPCID [Suspect]
     Route: 042
     Dates: start: 20040301, end: 20040414
  3. NAFAMOSTAT MESYLATE [Concomitant]
     Route: 065
     Dates: start: 20040301, end: 20040407

REACTIONS (2)
  - ANAEMIA [None]
  - PLATELET COUNT DECREASED [None]
